FAERS Safety Report 5873344-4 (Version None)
Quarter: 2008Q3

REPORT INFORMATION
  Report Type: 
  Country: None (occurrence: None)
  Receive Date: 20080829
  Receipt Date: 20071105
  Transmission Date: 20090109
  Serious: Yes (Hospitalization)
  Sender: FDA-Public Use
  Company Number: 2007-01096FE

PATIENT
  Age: 64 Year
  Sex: Male

DRUGS (2)
  1. TRH (TRH) (PROTIRELIN) [Suspect]
     Indication: DIAGNOSTIC PROCEDURE
     Dosage: 200 MCG ONCE
     Route: 042
  2. GNRH (GONADORELIN) [Suspect]
     Indication: DIAGNOSTIC PROCEDURE
     Route: 042

REACTIONS (5)
  - DEPRESSED LEVEL OF CONSCIOUSNESS [None]
  - OPHTHALMOPLEGIA [None]
  - PITUITARY HAEMORRHAGE [None]
  - PYREXIA [None]
  - TUMOUR NECROSIS [None]
